FAERS Safety Report 12368392 (Version 1)
Quarter: 2016Q2

REPORT INFORMATION
  Report Type: Spontaneous
  Country: US (occurrence: US)
  Receive Date: 20160513
  Receipt Date: 20160513
  Transmission Date: 20160815
  Serious: Yes (Hospitalization, Other)
  Sender: FDA-Public Use
  Company Number: ADR-2015-00841

PATIENT
  Age: 57 Year
  Sex: Male

DRUGS (7)
  1. ANCEF [Concomitant]
     Active Substance: CEFAZOLIN SODIUM
     Route: 042
  2. LIPITOR [Concomitant]
     Active Substance: ATORVASTATIN CALCIUM
  3. LOPRESSOR [Concomitant]
     Active Substance: METOPROLOL TARTRATE
     Dosage: 12.5 MG TWICE/DAY
  4. CIPRO [Concomitant]
     Active Substance: CIPROFLOXACIN HYDROCHLORIDE
  5. BACLOFEN. [Suspect]
     Active Substance: BACLOFEN
     Route: 048
  6. COMPOUNDED BACLOFEN [Suspect]
     Active Substance: BACLOFEN
     Dosage: 219.8 MCG/DAY
     Route: 037
  7. NORCO [Concomitant]
     Active Substance: ACETAMINOPHEN\HYDROCODONE BITARTRATE
     Dosage: AS NEEDED

REACTIONS (6)
  - Muscle spasticity [Recovered/Resolved]
  - Accidental overdose [Recovered/Resolved]
  - Confusional state [Recovered/Resolved]
  - Underdose [Recovered/Resolved]
  - Hypotonia [Recovered/Resolved]
  - Drug withdrawal syndrome [Recovered/Resolved]

NARRATIVE: CASE EVENT DATE: 2015
